FAERS Safety Report 11278368 (Version 2)
Quarter: 2015Q3

REPORT INFORMATION
  Report Type: Report from Study
  Country: BR (occurrence: BR)
  Receive Date: 20150717
  Receipt Date: 20150915
  Transmission Date: 20151125
  Serious: No
  Sender: FDA-Public Use
  Company Number: PHHY2015BR083717

PATIENT
  Sex: Female
  Weight: 45 kg

DRUGS (5)
  1. ENALAPRIL MALEATE. [Concomitant]
     Active Substance: ENALAPRIL MALEATE
     Indication: PRODUCT USED FOR UNKNOWN INDICATION
     Dosage: 1 DF, QD (MORE THAN 15 YEARS AGO)
     Route: 048
  2. GALVUS MET [Concomitant]
     Active Substance: METFORMIN HYDROCHLORIDE\VILDAGLIPTIN
     Indication: PRODUCT USED FOR UNKNOWN INDICATION
     Dosage: 1 DF, QD, MORE THAN 20 YEARS AGO
     Route: 048
  3. INSULIN [Concomitant]
     Active Substance: INSULIN NOS
     Indication: PRODUCT USED FOR UNKNOWN INDICATION
     Dosage: 100-18 MICROLITRE, ONCE A DAY, 15 YEARS AGO
     Route: 058
  4. ACLASTA [Suspect]
     Active Substance: ZOLEDRONIC ACID
     Indication: OSTEOPOROSIS
     Dosage: 5 MG, Q12MO (1 APPLICATION PER YEAR)
     Route: 042
     Dates: start: 2015
  5. AMLODIPINE BESYLATE. [Concomitant]
     Active Substance: AMLODIPINE BESYLATE
     Indication: PRODUCT USED FOR UNKNOWN INDICATION
     Dosage: 1 DF, QD, MORE THAN 15 YEARS AGO
     Route: 048

REACTIONS (9)
  - Hypersensitivity [Recovering/Resolving]
  - Hearing impaired [Unknown]
  - Nasopharyngitis [Recovered/Resolved]
  - Head discomfort [Recovering/Resolving]
  - Dizziness [Recovered/Resolved]
  - Oropharyngeal pain [Recovered/Resolved]
  - Dysphonia [Unknown]
  - Influenza [Recovering/Resolving]
  - Nasal congestion [Recovered/Resolved]
